FAERS Safety Report 8336468-8 (Version None)
Quarter: 2012Q2

REPORT INFORMATION
  Report Type: 
  Country: None (occurrence: None)
  Receive Date: 20120501
  Receipt Date: 20120417
  Transmission Date: 20120825
  Serious: Yes (Hospitalization, Other)
  Sender: FDA-Public Use
  Company Number: 2011P1008160

PATIENT
  Age: 47 Year
  Sex: Male
  Weight: 92.9874 kg

DRUGS (14)
  1. PLAVIX [Concomitant]
  2. COUMADIN [Suspect]
     Indication: PULMONARY EMBOLISM
     Dosage: 1 MG;QD;
     Dates: start: 20110327
  3. COUMADIN [Suspect]
     Indication: MYOCARDIAL INFARCTION
     Dosage: 1 MG;QD;
     Dates: start: 20110327
  4. WARFARIN SODIUM [Suspect]
     Indication: PULMONARY EMBOLISM
     Dosage: 7.5 MG; QD; PO; 5 MG; QD; 7.5 MG;QD;
     Route: 048
     Dates: start: 20110416
  5. WARFARIN SODIUM [Suspect]
     Indication: MYOCARDIAL INFARCTION
     Dosage: 7.5 MG; QD; PO; 5 MG; QD; 7.5 MG;QD;
     Route: 048
     Dates: start: 20110416
  6. WARFARIN SODIUM [Suspect]
     Indication: PULMONARY EMBOLISM
     Dosage: 7.5 MG; QD; PO; 5 MG; QD; 7.5 MG;QD;
     Route: 048
     Dates: start: 20081122
  7. WARFARIN SODIUM [Suspect]
     Indication: MYOCARDIAL INFARCTION
     Dosage: 7.5 MG; QD; PO; 5 MG; QD; 7.5 MG;QD;
     Route: 048
     Dates: start: 20081122
  8. WARFARIN SODIUM [Suspect]
     Indication: PULMONARY EMBOLISM
     Dosage: 7.5 MG; QD; PO; 5 MG; QD; 7.5 MG;QD;
     Route: 048
     Dates: end: 20110301
  9. WARFARIN SODIUM [Suspect]
     Indication: MYOCARDIAL INFARCTION
     Dosage: 7.5 MG; QD; PO; 5 MG; QD; 7.5 MG;QD;
     Route: 048
     Dates: end: 20110301
  10. WARFARIN SODIUM [Suspect]
     Indication: PULMONARY EMBOLISM
     Dosage: 7.5 MG; QD; PO; 5 MG; QD; 7.5 MG;QD;
     Route: 048
     Dates: start: 20110307, end: 20110301
  11. WARFARIN SODIUM [Suspect]
     Indication: MYOCARDIAL INFARCTION
     Dosage: 7.5 MG; QD; PO; 5 MG; QD; 7.5 MG;QD;
     Route: 048
     Dates: start: 20110307, end: 20110301
  12. SIMVASTATIN [Concomitant]
  13. LISINOPRIL [Concomitant]
  14. METOPROLOL TARTRATE [Concomitant]

REACTIONS (11)
  - CONTUSION [None]
  - INTERNATIONAL NORMALISED RATIO INCREASED [None]
  - CEREBROVASCULAR ACCIDENT [None]
  - CHOLECYSTECTOMY [None]
  - TOXICITY TO VARIOUS AGENTS [None]
  - TRANSIENT ISCHAEMIC ATTACK [None]
  - PAIN [None]
  - ANXIETY [None]
  - FEAR OF DEATH [None]
  - HAEMATURIA [None]
  - ANHEDONIA [None]
